FAERS Safety Report 11819540 (Version 2)
Quarter: 2016Q1

REPORT INFORMATION
  Report Type: Spontaneous
  Country: US (occurrence: US)
  Receive Date: 20151210
  Receipt Date: 20160203
  Transmission Date: 20160525
  Serious: Yes (Disabling, Other)
  Sender: FDA-Public Use
  Company Number: US-JNJFOC-20151108182

PATIENT
  Age: 58 Year
  Sex: Male
  Weight: 94.35 kg

DRUGS (2)
  1. STELARA [Suspect]
     Active Substance: USTEKINUMAB
     Indication: PSORIASIS
     Route: 058
     Dates: start: 20150911, end: 20151009
  2. PREDNISONE. [Concomitant]
     Active Substance: PREDNISONE
     Indication: PSORIASIS
     Route: 065
     Dates: start: 20150928, end: 20151012

REACTIONS (5)
  - Arthralgia [Recovering/Resolving]
  - Dermatitis exfoliative [Unknown]
  - Psoriasis [Recovering/Resolving]
  - Oedema peripheral [Recovering/Resolving]
  - Angioedema [Unknown]

NARRATIVE: CASE EVENT DATE: 2015
